FAERS Safety Report 8962456 (Version 2)
Quarter: 2012Q4

REPORT INFORMATION
  Report Type: 
  Country: US (occurrence: US)
  Receive Date: 20121214
  Receipt Date: 20121231
  Transmission Date: 20130627
  Serious: No
  Sender: FDA-Public Use
  Company Number: US-JNJFOC-20121204915

PATIENT
  Age: 59 Year
  Sex: Female
  Weight: 61.24 kg

DRUGS (1)
  1. TYLENOL COLD AND FLU SEVERE [Suspect]
     Indication: NASOPHARYNGITIS
     Route: 048
     Dates: start: 20121204

REACTIONS (1)
  - Blood glucose increased [Recovered/Resolved]
